FAERS Safety Report 11983018 (Version 2)
Quarter: 2016Q1

REPORT INFORMATION
  Report Type: Spontaneous
  Country: US (occurrence: US)
  Receive Date: 20160201
  Receipt Date: 20160212
  Transmission Date: 20160526
  Serious: No
  Sender: FDA-Public Use
  Company Number: US-PFIZER INC-2016046527

PATIENT
  Age: 70 Year
  Sex: Male
  Weight: 82.1 kg

DRUGS (1)
  1. SUTENT [Suspect]
     Active Substance: SUNITINIB MALATE
     Dosage: 50 MG 1 CAPSULE BY MOUTH FOR 4 WEEKS, THEN 2 WEEKS OFF.
     Route: 048

REACTIONS (2)
  - Skin exfoliation [Recovered/Resolved]
  - Arthralgia [Recovered/Resolved]
